FAERS Safety Report 8366849-8 (Version None)
Quarter: 2012Q2

REPORT INFORMATION
  Report Type: 
  Country: None (occurrence: None)
  Receive Date: 20120515
  Receipt Date: 20120515
  Transmission Date: 20120825
  Serious: Yes (Other)
  Sender: FDA-Public Use
  Company Number: None

PATIENT
  Age: 25 Year
  Sex: Female
  Weight: 88 kg

DRUGS (2)
  1. ROBITUSSIN DM PFIZER [Suspect]
     Indication: INFLUENZA LIKE ILLNESS
     Dosage: PO
     Route: 048
     Dates: start: 20120508, end: 20120511
  2. TAMIFLU [Suspect]
     Indication: INFLUENZA LIKE ILLNESS
     Dosage: 75 MG BID PO
     Route: 048
     Dates: start: 20120508, end: 20120511

REACTIONS (3)
  - VOMITING [None]
  - DIZZINESS [None]
  - BLOOD ALKALINE PHOSPHATASE INCREASED [None]
